FAERS Safety Report 5408009-6 (Version None)
Quarter: 2007Q3

REPORT INFORMATION
  Report Type: 
  Country: None (occurrence: None)
  Receive Date: 20070727
  Receipt Date: 20070605
  Transmission Date: 20080115
  Serious: Yes (Other)
  Sender: FDA-Public Use
  Company Number: AECAN200700051

PATIENT
  Age: 78 Year
  Sex: Male
  Weight: 79 kg

DRUGS (2)
  1. GAMUNEX [Suspect]
     Indication: MUSCULAR WEAKNESS
     Dosage: 5 GM; BIW; IV
     Route: 042
     Dates: start: 20070129, end: 20070201
  2. IMMUNE GLOBULIN (HUMAN) [Suspect]
     Indication: MUSCULAR WEAKNESS
     Dosage: 20 GM; BIW; IV
     Route: 042
     Dates: start: 20070129, end: 20070201

REACTIONS (1)
  - TRANSIENT ISCHAEMIC ATTACK [None]
